FAERS Safety Report 9578607 (Version 1)
Quarter: 2013Q4

REPORT INFORMATION
  Report Type: Spontaneous
  Country: US (occurrence: US)
  Receive Date: 20131001
  Receipt Date: 20131001
  Transmission Date: 20140711
  Serious: No
  Sender: FDA-Public Use
  Company Number: US-AMGEN-USASP2013013853

PATIENT
  Sex: Female
  Weight: 72.56 kg

DRUGS (16)
  1. ENBREL [Suspect]
     Indication: RHEUMATOID ARTHRITIS
     Dosage: 50 MG, QWK
     Route: 058
  2. SIMVASTATIN [Concomitant]
     Dosage: 40 MG, UNK
  3. B COMPLEX                          /00212701/ [Concomitant]
     Dosage: UNK
  4. REMICADE [Concomitant]
     Dosage: 100 MG, UNK
  5. ESTRACE [Concomitant]
     Dosage: 0.5 MG, UNK
  6. GABAPENTIN [Concomitant]
     Dosage: 100 MG, UNK
  7. FORTEO [Concomitant]
     Dosage: 600/2.4
  8. LODINE [Concomitant]
     Dosage: 200 MG, UNK
  9. PREDNISONE [Concomitant]
     Dosage: 10 MG, UNK
  10. METHOTREXATE [Concomitant]
     Dosage: 2.5 MG, UNK
  11. LISINOPRIL [Concomitant]
     Dosage: 10 MG, UNK
  12. RANITIDINE [Concomitant]
     Dosage: 150 MG, UNK
  13. TRAMADOL HCL [Concomitant]
     Dosage: 50 MG, UNK
  14. FOLIC ACID [Concomitant]
     Dosage: 1 MG, UNK
  15. CALCIUM [Concomitant]
     Dosage: 500 UNK, UNK
  16. VITAMIN D                          /00107901/ [Concomitant]
     Dosage: 1000 UNIT, UNK

REACTIONS (1)
  - Rheumatoid arthritis [Unknown]
